FAERS Safety Report 4787201-8 (Version None)
Quarter: 2005Q3

REPORT INFORMATION
  Report Type: 
  Country: None (occurrence: None)
  Receive Date: 20050927
  Receipt Date: 20050620
  Transmission Date: 20060218
  Serious: No
  Sender: FDA-Public Use
  Company Number: USA0506100906

PATIENT
  Age: 53 Year
  Sex: Female
  Weight: 55 kg

DRUGS (5)
  1. STRATTERA [Suspect]
     Indication: ANXIETY
     Dosage: 40 MG DAY
     Dates: start: 20050501
  2. PROZAC [Suspect]
     Indication: DEPRESSION
     Dates: end: 20040101
  3. ESTROGEN NOS [Concomitant]
  4. PROGESTERONE [Concomitant]
  5. VITAMINS [Concomitant]

REACTIONS (3)
  - ALOPECIA [None]
  - ANXIETY [None]
  - SEXUAL DYSFUNCTION [None]
